FAERS Safety Report 25305794 (Version 2)
Quarter: 2025Q2

REPORT INFORMATION
  Report Type: Spontaneous
  Country: CN (occurrence: CN)
  Receive Date: 20250513
  Receipt Date: 20250523
  Transmission Date: 20250717
  Serious: Yes (Other)
  Sender: TEVA
  Company Number: CN-TEVA-VS-3330017

PATIENT
  Age: 66 Year
  Sex: Female

DRUGS (10)
  1. BENDAMUSTINE [Suspect]
     Active Substance: BENDAMUSTINE
     Indication: Follicular lymphoma stage III
     Route: 065
     Dates: start: 20240312
  2. POLATUZUMAB VEDOTIN [Suspect]
     Active Substance: POLATUZUMAB VEDOTIN
     Indication: High-grade B-cell lymphoma
     Route: 065
     Dates: start: 20240319
  3. GLOFITAMAB [Suspect]
     Active Substance: GLOFITAMAB
     Indication: High-grade B-cell lymphoma
     Route: 065
     Dates: start: 20240501
  4. GLOFITAMAB [Suspect]
     Active Substance: GLOFITAMAB
     Indication: High-grade B-cell lymphoma
     Route: 065
     Dates: start: 20240501
  5. GLOFITAMAB [Suspect]
     Active Substance: GLOFITAMAB
     Indication: High-grade B-cell lymphoma
     Route: 065
     Dates: start: 20240501
  6. RITUXIMAB [Suspect]
     Active Substance: RITUXIMAB
     Indication: High-grade B-cell lymphoma
     Route: 065
     Dates: start: 20240319
  7. RITUXIMAB [Suspect]
     Active Substance: RITUXIMAB
     Indication: High-grade B-cell lymphoma
     Route: 065
     Dates: start: 20231212
  8. PREDNISONE [Suspect]
     Active Substance: PREDNISONE
     Indication: High-grade B-cell lymphoma
     Route: 065
     Dates: start: 20240319
  9. CYCLOPHOSPHAMIDE [Suspect]
     Active Substance: CYCLOPHOSPHAMIDE
     Indication: High-grade B-cell lymphoma
     Route: 065
     Dates: start: 20240319
  10. DOXORUBICIN [Suspect]
     Active Substance: DOXORUBICIN
     Indication: High-grade B-cell lymphoma
     Route: 065
     Dates: start: 20240319

REACTIONS (3)
  - Drug ineffective [Unknown]
  - Neutropenia [Recovered/Resolved]
  - Cytokine release syndrome [Recovered/Resolved]

NARRATIVE: CASE EVENT DATE: 20240101
